FAERS Safety Report 7506926-4 (Version None)
Quarter: 2011Q2

REPORT INFORMATION
  Report Type: 
  Country: None (occurrence: None)
  Receive Date: 20110526
  Receipt Date: 20110520
  Transmission Date: 20111010
  Serious: Yes (Hospitalization)
  Sender: FDA-Public Use
  Company Number: US-SANOFI-AVENTIS-2011SA032504

PATIENT
  Age: 54 Year
  Sex: Female

DRUGS (5)
  1. PLAVIX [Suspect]
     Route: 065
     Dates: start: 20050101
  2. METFORMIN HCL [Concomitant]
  3. LANTUS [Concomitant]
  4. AVAPRO [Concomitant]
  5. HYDROCHLOROTHIAZIDE [Concomitant]

REACTIONS (3)
  - ASTHENIA [None]
  - CYST [None]
  - CELLULITIS [None]
